FAERS Safety Report 24909482 (Version 1)
Quarter: 2025Q1

REPORT INFORMATION
  Report Type: Spontaneous
  Country: US (occurrence: None)
  Receive Date: 20250130
  Receipt Date: 20250130
  Transmission Date: 20250408
  Serious: No
  Sender: FDA-CTU
  Company Number: None

PATIENT
  Sex: Female

DRUGS (3)
  1. DEVICE [Suspect]
     Active Substance: DEVICE
     Indication: Fabry^s disease
     Route: 042
     Dates: start: 202002
  2. FABRAZYME [Suspect]
     Active Substance: AGALSIDASE BETA
  3. FABRAZYME [Suspect]
     Active Substance: AGALSIDASE BETA

REACTIONS (3)
  - Alopecia [None]
  - Device power source issue [None]
  - Device malfunction [None]
